FAERS Safety Report 9494948 (Version 6)
Quarter: 2014Q2

REPORT INFORMATION
  Report Type: Report from Study
  Country: US (occurrence: US)
  Receive Date: 20130903
  Receipt Date: 20140528
  Transmission Date: 20141212
  Serious: Yes (Hospitalization)
  Sender: FDA-Public Use
  Company Number: US-SANOFI-AVENTIS-2013SA086679

PATIENT
  Age: 65 Year
  Sex: Female
  Weight: 74 kg

DRUGS (14)
  1. AUBAGIO [Suspect]
     Indication: MULTIPLE SCLEROSIS
     Route: 048
     Dates: start: 20130802, end: 201402
  2. AUBAGIO [Suspect]
     Indication: MULTIPLE SCLEROSIS
     Route: 048
     Dates: start: 20130802, end: 201402
  3. BACLOFEN [Concomitant]
     Indication: MUSCLE SPASMS
     Route: 065
  4. GABAPENTIN [Concomitant]
  5. METOPROLOL [Concomitant]
  6. SIMVASTATIN [Concomitant]
  7. ALBUTEROL [Concomitant]
  8. VITAMINS [Concomitant]
  9. CALCIUM [Concomitant]
  10. FOLIC ACID [Concomitant]
  11. FISH OIL [Concomitant]
  12. ZINC [Concomitant]
  13. VITAMIN C [Concomitant]
  14. VITAMIN D3 [Concomitant]

REACTIONS (6)
  - Aphagia [Not Recovered/Not Resolved]
  - Paranasal sinus discomfort [Not Recovered/Not Resolved]
  - Nausea [Not Recovered/Not Resolved]
  - Alopecia [Unknown]
  - Multiple sclerosis [Unknown]
  - Drug dose omission [Unknown]
